FAERS Safety Report 5055747-3 (Version None)
Quarter: 2006Q3

REPORT INFORMATION
  Report Type: 
  Country: None (occurrence: None)
  Receive Date: 20060714
  Receipt Date: 20060629
  Transmission Date: 20061208
  Serious: Yes (Hospitalization)
  Sender: FDA-Public Use
  Company Number: SPV1-2006-00009

PATIENT
  Age: 16 Year
  Sex: Female
  Weight: 52.2 kg

DRUGS (1)
  1. ADDERALL 10 [Suspect]
     Dosage: 15 MG, ONCE DOSE, ORAL
     Route: 048
     Dates: start: 20060519, end: 20060519

REACTIONS (13)
  - AGITATION [None]
  - DYSKINESIA [None]
  - FEELING ABNORMAL [None]
  - HALLUCINATION, VISUAL [None]
  - HYPERTENSION [None]
  - INTENTIONAL DRUG MISUSE [None]
  - LOSS OF CONSCIOUSNESS [None]
  - PARANOIA [None]
  - REFUSAL OF TREATMENT BY RELATIVE [None]
  - SUPRAVENTRICULAR TACHYCARDIA [None]
  - TACHYCARDIA [None]
  - TETANY [None]
  - TONGUE DISORDER [None]
